FAERS Safety Report 16188896 (Version 1)
Quarter: 2019Q2

REPORT INFORMATION
  Report Type: Spontaneous
  Country: DE (occurrence: DE)
  Receive Date: 20190412
  Receipt Date: 20190412
  Transmission Date: 20190711
  Serious: Yes (Death)
  Sender: FDA-Public Use
  Company Number: DE-TEVA-2019-DE-1034850

PATIENT
  Age: 69 Year
  Sex: Female
  Weight: 80 kg

DRUGS (5)
  1. AMLODIPIN [Concomitant]
     Active Substance: AMLODIPINE BESYLATE
     Dosage: 10 MILLIGRAM DAILY;
     Route: 048
     Dates: end: 20190227
  2. CARBIMAZOL [Concomitant]
     Active Substance: CARBIMAZOLE
     Indication: HYPERTHYROIDISM
     Dosage: 10  DAILY;
     Route: 048
     Dates: end: 20190306
  3. LISINOPRIL. [Suspect]
     Active Substance: LISINOPRIL
     Indication: HYPERTENSION
     Dosage: 15 MILLIGRAM DAILY;
     Route: 048
     Dates: end: 20190227
  4. UNACID (SULTAMICILLIN TOSILATE) [Concomitant]
     Active Substance: SULTAMICILLIN TOSYLATE
     Indication: PROPHYLAXIS
     Route: 042
     Dates: start: 20190227
  5. FUROSEMID [Concomitant]
     Active Substance: FUROSEMIDE
     Dosage: 20 MILLIGRAM DAILY;
     Route: 048
     Dates: end: 20190227

REACTIONS (9)
  - Angioedema [Fatal]
  - Tracheostomy [Fatal]
  - Pneumonia aspiration [Fatal]
  - Endotracheal intubation [Fatal]
  - Dyspnoea [Fatal]
  - Swollen tongue [Fatal]
  - Pulmonary sepsis [Fatal]
  - Multiple organ dysfunction syndrome [Fatal]
  - Acute respiratory distress syndrome [Fatal]

NARRATIVE: CASE EVENT DATE: 20190228
